FAERS Safety Report 6669759-7 (Version None)
Quarter: 2010Q2

REPORT INFORMATION
  Report Type: 
  Country: None (occurrence: None)
  Receive Date: 20100406
  Receipt Date: 20100323
  Transmission Date: 20101027
  Serious: Yes (Hospitalization)
  Sender: FDA-Public Use
  Company Number: DE-ABBOTT-10P-062-0634264-00

PATIENT
  Sex: Female
  Weight: 66 kg

DRUGS (4)
  1. ZEMPLAR [Suspect]
     Indication: HYPERPARATHYROIDISM SECONDARY
     Route: 042
     Dates: start: 20080324, end: 20080522
  2. ZEMPLAR [Suspect]
     Route: 042
     Dates: start: 20080523, end: 20090303
  3. ZEMPLAR [Suspect]
     Route: 042
     Dates: start: 20090304
  4. ARANESP [Concomitant]
     Indication: DRUG USE FOR UNKNOWN INDICATION
     Dates: start: 20080901, end: 20081001

REACTIONS (1)
  - FEMUR FRACTURE [None]
